FAERS Safety Report 5660959-1 (Version None)
Quarter: 2008Q1

REPORT INFORMATION
  Report Type: 
  Country: None (occurrence: None)
  Receive Date: 20080306
  Receipt Date: 20080221
  Transmission Date: 20080703
  Serious: Yes (Hospitalization)
  Sender: FDA-Public Use
  Company Number: SPV1-2008-00371

PATIENT
  Age: 76 Year
  Sex: Male
  Weight: 51 kg

DRUGS (13)
  1. ANAGRELIDE HYDROCHLORIDE [Suspect]
     Indication: MYELOPROLIFERATIVE DISORDER
     Dosage: 0.5 MG,
     Dates: start: 20060701, end: 20080122
  2. PANTOZOL /01263202/ (PANTOPRAZOLE SODIUM) TABLET [Concomitant]
  3. ASCAL /00800002/ (CARBASALATE CALCIUM) TABLET [Concomitant]
  4. LABETALOL HCL (LABETALOL HYDROCHLORIDE) TABLET [Concomitant]
  5. LASIX /00032601/ (FUROSEMIDE) TABLET [Concomitant]
  6. ALDACTONE /00006201/ (SPIRONOLACTONE) TABLET [Concomitant]
  7. APROVEL (IRBESARTAN) TABLET [Concomitant]
  8. COVERSYL /00790701/ (PERINDOPRIL) TABLET [Concomitant]
  9. CARDURA XL (DOXAZOSIN MESILATE) TABLET [Concomitant]
  10. NORVASC /00972402/ (AMLODIPINE BESILATE) TABLET [Concomitant]
  11. SPIRIVA (TIOTROPIUM BROMIDE) UNKNOWN [Concomitant]
  12. SERETIDE DISCUS (FLUTICASONE PROPIONATE, SALMETEROL XINAFOATE) UNKNOWN [Concomitant]
  13. PARACETAMOL HEXAL (PARACETAMOL) TABLET [Concomitant]

REACTIONS (3)
  - HYPOTENSION [None]
  - PANCYTOPENIA [None]
  - SYNCOPE [None]
